FAERS Safety Report 7729840-8 (Version None)
Quarter: 2011Q3

REPORT INFORMATION
  Report Type: 
  Country: None (occurrence: None)
  Receive Date: 20110906
  Receipt Date: 20110829
  Transmission Date: 20111222
  Serious: Yes (Hospitalization)
  Sender: FDA-Public Use
  Company Number: CA-NAPPMUNDI-GBR-2011-0008742

PATIENT
  Age: 74 Year
  Sex: Female
  Weight: 80 kg

DRUGS (13)
  1. MORPHINE [Concomitant]
     Dosage: 7.5 MG, Q6H
  2. CALCIUM CARBONATE [Concomitant]
     Dosage: 500 MG, DAILY
  3. MENTHOL [Concomitant]
     Route: 061
  4. HYDROCHLOROTHIAZIDE [Concomitant]
     Indication: HYPERTENSION
     Dosage: 12.5 MG, DAILY
  5. VITAMIN D [Concomitant]
     Dosage: 1000 IU, DAILY
  6. MENTHOLATUM DEEP HEAT RUB [Concomitant]
  7. MORPHINE [Concomitant]
     Dosage: 2.5 MG, Q6H
     Route: 048
  8. SENNA                              /00142201/ [Concomitant]
     Indication: CONSTIPATION PROPHYLAXIS
     Dosage: 2 TABLET, UNK
     Route: 048
  9. MORPHINE SULFATE [Suspect]
     Indication: ARTHRALGIA
     Dosage: 15 MG, BID
     Route: 048
  10. LACTULOSE [Concomitant]
     Dosage: 15 ML, BID
     Route: 048
  11. ACETAMINOPHEN [Concomitant]
     Dosage: 650 MG, QID
  12. IBUPROFEN [Concomitant]
     Dosage: 400 MG, TID
  13. OMEPRAZOLE [Concomitant]
     Dosage: 20 MG, DAILY

REACTIONS (4)
  - ABDOMINAL DISCOMFORT [None]
  - SOMNOLENCE [None]
  - RENAL IMPAIRMENT [None]
  - CONFUSIONAL STATE [None]
